FAERS Safety Report 10687727 (Version 1)
Quarter: 2014Q4

REPORT INFORMATION
  Report Type: Spontaneous
  Country: US (occurrence: None)
  Receive Date: 20141231
  Receipt Date: 20141231
  Transmission Date: 20150529
  Serious: Yes (Hospitalization)
  Sender: FDA-Public Use
  Company Number: None

PATIENT
  Age: 68 Year
  Sex: Male
  Weight: 83.2 kg

DRUGS (1)
  1. WARFARIN [Suspect]
     Active Substance: WARFARIN
     Route: 048
     Dates: end: 20141224

REACTIONS (2)
  - International normalised ratio increased [None]
  - Wound haemorrhage [None]

NARRATIVE: CASE EVENT DATE: 20141224
